FAERS Safety Report 20838914 (Version 4)
Quarter: 2022Q2

REPORT INFORMATION
  Report Type: Spontaneous
  Country: US (occurrence: US)
  Receive Date: 20220517
  Receipt Date: 20220627
  Transmission Date: 20220721
  Serious: No
  Sender: FDA-Public Use
  Company Number: US-PFIZER INC-202200639146

PATIENT
  Age: 14 Year
  Sex: Female
  Weight: 97.52 kg

DRUGS (1)
  1. GENOTROPIN [Suspect]
     Active Substance: SOMATROPIN
     Indication: Growth hormone deficiency
     Dosage: UNK

REACTIONS (7)
  - Injection site pain [Unknown]
  - Poor quality device used [Unknown]
  - Device occlusion [Unknown]
  - Needle issue [Unknown]
  - Device breakage [Unknown]
  - Device operational issue [Unknown]
  - Device leakage [Unknown]
